FAERS Safety Report 4396994-3 (Version None)
Quarter: 2004Q3

REPORT INFORMATION
  Report Type: 
  Country: None (occurrence: None)
  Receive Date: 20040714
  Receipt Date: 20040702
  Transmission Date: 20050211
  Serious: Yes (Hospitalization)
  Sender: FDA-Public Use
  Company Number: FR-BRISTOL-MYERS SQUIBB COMPANY-12631073

PATIENT
  Age: 36 Year
  Sex: Male

DRUGS (5)
  1. BRISTOPEN INJ 1 G [Suspect]
     Route: 042
     Dates: start: 20040317, end: 20040325
  2. AMOXICILLIN [Suspect]
     Indication: ENDOCARDITIS
     Route: 042
     Dates: start: 20040325, end: 20040419
  3. AUGMENTIN '125' [Suspect]
     Indication: ENDOCARDITIS
     Route: 042
     Dates: start: 20040314, end: 20040316
  4. IMOVANE [Suspect]
     Route: 048
     Dates: start: 20040314, end: 20040505
  5. OMEPRAZOLE [Suspect]
     Route: 048
     Dates: start: 20040314, end: 20040505

REACTIONS (4)
  - ALANINE AMINOTRANSFERASE INCREASED [None]
  - ASPARTATE AMINOTRANSFERASE INCREASED [None]
  - HEPATITIS [None]
  - HYPEREOSINOPHILIC SYNDROME [None]
